FAERS Safety Report 9067003 (Version 1)
Quarter: 2013Q1

REPORT INFORMATION
  Report Type: Report from Study
  Country: CA (occurrence: CA)
  Receive Date: 20130214
  Receipt Date: 20130214
  Transmission Date: 20140127
  Serious: Yes (Other)
  Sender: FDA-Public Use
  Company Number: CA-JNJFOC-20121208554

PATIENT
  Age: 74 None
  Sex: Female
  Weight: 57.2 kg

DRUGS (15)
  1. REMICADE [Suspect]
     Indication: RHEUMATOID ARTHRITIS
     Route: 042
     Dates: start: 20050628
  2. REMICADE [Suspect]
     Indication: RHEUMATOID ARTHRITIS
     Dosage: 51ST INFUSION
     Route: 042
     Dates: start: 20121212
  3. REMICADE [Suspect]
     Indication: RHEUMATOID ARTHRITIS
     Dosage: 52ND INFUSION
     Route: 042
     Dates: start: 20130205
  4. MTX [Concomitant]
     Route: 048
  5. FOLIC ACID [Concomitant]
     Route: 065
  6. VITAMIN B 12 [Concomitant]
     Route: 065
  7. CALCIUM [Concomitant]
     Route: 065
  8. FISH OIL [Concomitant]
     Route: 065
  9. NAPROXEN [Concomitant]
     Dosage: AS NECESSARY
     Route: 065
  10. COSOPT [Concomitant]
     Route: 047
  11. DIDROCAL [Concomitant]
     Route: 065
  12. ALPHAGAN [Concomitant]
     Route: 047
  13. LUMIGAN [Concomitant]
     Dosage: AS NECESSARY
     Route: 047
  14. VITAMIN D [Concomitant]
     Route: 065
  15. PREDNISOLONE [Concomitant]
     Route: 065

REACTIONS (1)
  - Trabeculectomy [Not Recovered/Not Resolved]
